FAERS Safety Report 6403759-7 (Version None)
Quarter: 2009Q4

REPORT INFORMATION
  Report Type: 
  Country: None (occurrence: None)
  Receive Date: 20091013
  Receipt Date: 20091001
  Transmission Date: 20100525
  Serious: Yes (Hospitalization)
  Sender: FDA-Public Use
  Company Number: 395909

PATIENT
  Age: 73 Year
  Sex: Male

DRUGS (1)
  1. (ETHANOL) [Suspect]
     Indication: DRUG THERAPY
     Dosage: 70 ML, INJECTION ;  5 ML INJECTION ; 15 ML INJECTION
     Route: 042

REACTIONS (9)
  - DRUG TOXICITY [None]
  - HEPATIC LESION [None]
  - HYPOTENSION [None]
  - LACTIC ACIDOSIS [None]
  - NAUSEA [None]
  - PANCREATITIS ACUTE [None]
  - PYREXIA [None]
  - RENAL ARTERY STENOSIS [None]
  - TACHYPNOEA [None]
